FAERS Safety Report 18768354 (Version 1)
Quarter: 2021Q1

REPORT INFORMATION
  Report Type: Report from Study
  Country: US (occurrence: US)
  Receive Date: 20210121
  Receipt Date: 20210121
  Transmission Date: 20210419
  Serious: Yes (Other)
  Sender: FDA-Public Use
  Company Number: US-PFIZER INC-2021039568

PATIENT
  Age: 56 Year
  Sex: Female

DRUGS (2)
  1. IBRANCE [Suspect]
     Active Substance: PALBOCICLIB
     Indication: BREAST CANCER FEMALE
     Dosage: 125 MG,  DAILY FOR 21 DAYS OF 28 DAY CYCLE
     Route: 048
     Dates: start: 20190717, end: 20190816
  2. IBRANCE [Suspect]
     Active Substance: PALBOCICLIB
     Dosage: 100 MG, DAILY FOR 21 DAYS OF 28 DAY CYCLE
     Route: 048
     Dates: start: 20190817

REACTIONS (4)
  - Myelosuppression [Recovered/Resolved]
  - Insomnia [Unknown]
  - Fatigue [Unknown]
  - Anxiety [Unknown]
